FAERS Safety Report 4464190-7 (Version None)
Quarter: 2004Q4

REPORT INFORMATION
  Report Type: 
  Country: None (occurrence: None)
  Receive Date: 20041001
  Receipt Date: 20040920
  Transmission Date: 20050328
  Serious: Yes (Other)
  Sender: FDA-Public Use
  Company Number: US-GLAXOSMITHKLINE-A0526422A

PATIENT
  Age: 41 Year
  Sex: Female

DRUGS (2)
  1. PAXIL [Suspect]
     Dosage: 20MG PER DAY
     Route: 048
     Dates: start: 20020615, end: 20020715
  2. GUAIFENESIN [Concomitant]

REACTIONS (7)
  - AMNESIA [None]
  - ANOREXIA [None]
  - CONVULSION [None]
  - HYPERHIDROSIS [None]
  - INSOMNIA [None]
  - LOSS OF CONSCIOUSNESS [None]
  - RASH [None]
